FAERS Safety Report 4553277-6 (Version None)
Quarter: 2005Q1

REPORT INFORMATION
  Report Type: 
  Country: None (occurrence: None)
  Receive Date: 20050113
  Receipt Date: 20050113
  Transmission Date: 20050727
  Serious: Yes (Hospitalization)
  Sender: FDA-Public Use
  Company Number: DSA_25593_2005

PATIENT
  Age: 90 Year
  Sex: Female

DRUGS (7)
  1. TILDIEM [Suspect]
     Indication: ATRIAL FIBRILLATION
     Dosage: 60 MG Q DAY PO
     Route: 048
     Dates: end: 20041005
  2. TILDIEM [Suspect]
     Indication: ATRIAL FLUTTER
     Dosage: 60 MG Q DAY PO
     Route: 048
     Dates: end: 20041005
  3. HEMIGOXINE NATIVELLE [Suspect]
     Indication: ATRIAL FIBRILLATION
     Dosage: 0.125 MG Q DAY PO
     Route: 048
     Dates: end: 20041005
  4. HEMIGOXINE NATIVELLE [Suspect]
     Indication: ATRIAL FLUTTER
     Dosage: 0.125 MG Q DAY PO
     Route: 048
     Dates: end: 20041005
  5. GLUCOPHAGE [Concomitant]
  6. DOPERGINE [Concomitant]
  7. MODOPAR [Concomitant]

REACTIONS (12)
  - AORTIC STENOSIS [None]
  - ATRIAL FIBRILLATION [None]
  - BLOOD PH DECREASED [None]
  - BLOOD PRESSURE DIASTOLIC DECREASED [None]
  - BRADYCARDIA [None]
  - CARDIAC FAILURE [None]
  - HEPATIC PAIN [None]
  - LEFT VENTRICULAR FAILURE [None]
  - MALAISE [None]
  - OEDEMA PERIPHERAL [None]
  - RENAL CYST [None]
  - RESPIRATORY RATE INCREASED [None]
